FAERS Safety Report 11642024 (Version 1)
Quarter: 2015Q4

REPORT INFORMATION
  Report Type: Spontaneous
  Country: NL (occurrence: NL)
  Receive Date: 20151019
  Receipt Date: 20151019
  Transmission Date: 20160304
  Serious: Yes (Hospitalization)
  Sender: FDA-Public Use
  Company Number: NL-GE HEALTHCARE MEDICAL DIAGNOSTICS-VISP-PR-1509S-0392

PATIENT

DRUGS (2)
  1. VISIPAQUE [Suspect]
     Active Substance: IODIXANOL
     Indication: PRODUCT USED FOR UNKNOWN INDICATION
     Route: 065
  2. VISIPAQUE [Suspect]
     Active Substance: IODIXANOL
     Indication: DIAGNOSTIC PROCEDURE

REACTIONS (7)
  - Erythema [Unknown]
  - Oropharyngeal pain [Unknown]
  - Feeling hot [Unknown]
  - Swelling face [Unknown]
  - Visual impairment [Unknown]
  - Micturition urgency [Unknown]
  - Dry throat [Unknown]
